FAERS Safety Report 8024115-4 (Version None)
Quarter: 2012Q1

REPORT INFORMATION
  Report Type: 
  Country: None (occurrence: None)
  Receive Date: 20120105
  Receipt Date: 20120102
  Transmission Date: 20120608
  Serious: Yes (Death, Hospitalization)
  Sender: FDA-Public Use
  Company Number: NL-GENZYME-CLOF-1001589

PATIENT
  Sex: Male
  Weight: 50.6 kg

DRUGS (7)
  1. EVOLTRA [Suspect]
     Indication: ACUTE MYELOID LEUKAEMIA
     Dosage: 15 MG (10 MG/M2), QD
     Route: 042
     Dates: start: 20110412, end: 20110416
  2. CIPROFLAXACIN [Concomitant]
     Indication: PRODUCT USED FOR UNKNOWN INDICATION
     Dosage: 500 UNK, UNK
     Route: 048
     Dates: start: 20110411
  3. CYTARABINE [Suspect]
     Indication: ACUTE MYELOID LEUKAEMIA
     Dosage: 304 MG, QD DAY 1-5
     Route: 042
     Dates: start: 20110412, end: 20110416
  4. TAROSIN [Concomitant]
     Indication: PYREXIA
     Dosage: 4500 UNK, UNK
     Route: 042
  5. FLUCONAZOLE [Concomitant]
     Indication: PRODUCT USED FOR UNKNOWN INDICATION
     Dosage: 200 UNK, UNK
     Route: 048
     Dates: start: 20110411
  6. DICLOFENAC [Concomitant]
     Indication: OSTEOARTHRITIS
     Dosage: 50 UNK, UNK
     Route: 048
     Dates: end: 20110412
  7. IDARUBICIN HCL [Suspect]
     Indication: ACUTE MYELOID LEUKAEMIA
     Dosage: 18 MG, QD DAY 1-3
     Route: 042
     Dates: start: 20110412, end: 20110414

REACTIONS (2)
  - RESPIRATORY FAILURE [None]
  - BRONCHOPULMONARY ASPERGILLOSIS [None]
